FAERS Safety Report 22232170 (Version 2)
Quarter: 2024Q4

REPORT INFORMATION
  Report Type: Spontaneous
  Country: EG (occurrence: EG)
  Receive Date: 20230420
  Receipt Date: 20241011
  Transmission Date: 20250115
  Serious: Yes (Other)
  Sender: CHEPLAPHARM
  Company Number: EG-ROCHE-3266531

PATIENT
  Age: 70 Year
  Sex: Female

DRUGS (17)
  1. CAPECITABINE [Suspect]
     Active Substance: CAPECITABINE
     Indication: Breast cancer metastatic
     Dosage: 2 WEEKS EVERY 3 WEEKS (FOR 2 WEEKS WITH 1 WEEK REST)
     Route: 048
     Dates: start: 20210627, end: 20210710
  2. CAPECITABINE [Suspect]
     Active Substance: CAPECITABINE
     Indication: Breast cancer metastatic
     Dosage: MOST RECENT DOSE
     Route: 048
     Dates: start: 20210720
  3. TRASTUZUMAB [Suspect]
     Active Substance: TRASTUZUMAB
     Indication: Breast cancer metastatic
     Dosage: ON 20/MAY/2021 MOST RECENT DOSE OF  TRASTUZUMAB.?EVERY 3 WEEKS
     Route: 058
     Dates: start: 20201109
  4. TRASTUZUMAB [Suspect]
     Active Substance: TRASTUZUMAB
     Indication: Breast cancer metastatic
     Route: 058
     Dates: start: 20210520
  5. TRASTUZUMAB [Suspect]
     Active Substance: TRASTUZUMAB
     Indication: Breast cancer metastatic
     Dosage: EVERY 3 WEEKS
     Route: 058
     Dates: start: 20220208
  6. PACLITAXEL [Suspect]
     Active Substance: PACLITAXEL
     Indication: Breast cancer metastatic
     Dosage: 80 MG/M2, SINGLE 1 WEEKS
     Route: 042
     Dates: start: 20201109, end: 20210531
  7. GEMCITABINE [Suspect]
     Active Substance: GEMCITABINE
     Indication: Breast cancer metastatic
     Dosage: WEEKLY FOR 2 WEEKS EVERY 3 WEEKS
     Route: 042
     Dates: start: 20211229
  8. GEMCITABINE [Suspect]
     Active Substance: GEMCITABINE
     Indication: Breast cancer metastatic
     Dosage: DAY 1 AND DAY 8 EVERY 21 DAYS
     Route: 042
     Dates: start: 20220208, end: 20220208
  9. LAPATINIB [Suspect]
     Active Substance: LAPATINIB
     Indication: Breast cancer metastatic
     Dosage: DAILY DOSE: 1250 MILLIGRAM
     Route: 048
     Dates: start: 20210627, end: 20220119
  10. WARFARIN SODIUM [Concomitant]
     Active Substance: WARFARIN SODIUM
     Indication: Peripheral ischaemia
     Dosage: DAILY DOSE: 1 MILLIGRAM
     Route: 048
  11. FUROSEMIDE\SPIRONOLACTONE [Concomitant]
     Active Substance: FUROSEMIDE\SPIRONOLACTONE
     Indication: Peripheral ischaemia
     Route: 048
  12. CARDIXIN [Concomitant]
     Indication: Peripheral ischaemia
     Route: 048
  13. METOPROLOL TARTRATE [Concomitant]
     Active Substance: METOPROLOL TARTRATE
     Indication: Peripheral ischaemia
     Dosage: DAILY DOSE: 50 MILLIGRAM
     Route: 048
  14. AUGMENTIN [Concomitant]
     Active Substance: AMOXICILLIN\CLAVULANATE POTASSIUM
     Indication: Diarrhoea
     Route: 048
     Dates: start: 20220119
  15. PIPERACILLIN SODIUM\TAZOBACTAM SODIUM [Concomitant]
     Active Substance: PIPERACILLIN SODIUM\TAZOBACTAM SODIUM
     Indication: Dyspnoea
     Route: 042
     Dates: start: 20220310
  16. PIPERACILLIN SODIUM\TAZOBACTAM SODIUM [Concomitant]
     Active Substance: PIPERACILLIN SODIUM\TAZOBACTAM SODIUM
     Indication: Cough
     Route: 042
     Dates: start: 20220310
  17. PIPERACILLIN SODIUM\TAZOBACTAM SODIUM [Concomitant]
     Active Substance: PIPERACILLIN SODIUM\TAZOBACTAM SODIUM
     Indication: Lower respiratory tract infection
     Route: 042
     Dates: start: 20220310

REACTIONS (4)
  - Seizure [Unknown]
  - Seizure [Unknown]
  - Loss of consciousness [Unknown]
  - Bone pain [Unknown]

NARRATIVE: CASE EVENT DATE: 20220201
